FAERS Safety Report 6670390-8 (Version None)
Quarter: 2010Q2

REPORT INFORMATION
  Report Type: 
  Country: None (occurrence: None)
  Receive Date: 20100407
  Receipt Date: 20100331
  Transmission Date: 20101027
  Serious: Yes (Hospitalization)
  Sender: FDA-Public Use
  Company Number: US-BIOGENIDEC-2010BI010792

PATIENT
  Age: 54 Year
  Sex: Female
  Weight: 68 kg

DRUGS (1)
  1. TYSABRI [Suspect]
     Indication: MULTIPLE SCLEROSIS
     Route: 042
     Dates: start: 20090902

REACTIONS (6)
  - ARTHRALGIA [None]
  - CELLULITIS [None]
  - CHILLS [None]
  - DECREASED IMMUNE RESPONSIVENESS [None]
  - PAIN [None]
  - PYREXIA [None]
